FAERS Safety Report 7017623-6 (Version None)
Quarter: 2010Q3

REPORT INFORMATION
  Report Type: 
  Country: None (occurrence: None)
  Receive Date: 20100928
  Receipt Date: 20100917
  Transmission Date: 20110219
  Serious: Yes (Death)
  Sender: FDA-Public Use
  Company Number: HU-GENZYME-CLOF-1001213

PATIENT

DRUGS (5)
  1. EVOLTRA [Suspect]
     Indication: ACUTE LEUKAEMIA
     Dosage: 50 MG/M2, QDX4
     Route: 042
  2. BUSILVEX [Suspect]
     Indication: ACUTE LEUKAEMIA
     Dosage: 16 MG/KG, UNK
     Route: 042
  3. CYCLOPHOSPHAMIDE [Suspect]
     Indication: ACUTE LEUKAEMIA
     Dosage: 120 MG/KG, UNK
     Route: 042
  4. CYCLOSPORINE [Concomitant]
     Indication: PROPHYLAXIS AGAINST GRAFT VERSUS HOST DISEASE
  5. METHOTREXATE [Concomitant]
     Indication: PROPHYLAXIS AGAINST GRAFT VERSUS HOST DISEASE

REACTIONS (2)
  - ACUTE GRAFT VERSUS HOST DISEASE IN INTESTINE [None]
  - MULTI-ORGAN FAILURE [None]
